FAERS Safety Report 6660232-9 (Version None)
Quarter: 2010Q1

REPORT INFORMATION
  Report Type: 
  Country: None (occurrence: None)
  Receive Date: 20100331
  Receipt Date: 20100303
  Transmission Date: 20100710
  Serious: No
  Sender: FDA-Public Use
  Company Number: 2009BI031285

PATIENT
  Age: 57 Year
  Sex: Female

DRUGS (4)
  1. TYSABRI [Suspect]
     Indication: MULTIPLE SCLEROSIS
     Route: 042
     Dates: start: 20080624, end: 20091113
  2. TYSABRI [Suspect]
     Route: 042
  3. AVONEX [Concomitant]
     Indication: MULTIPLE SCLEROSIS
     Route: 030
     Dates: start: 20020814
  4. AVONEX [Concomitant]
     Route: 030

REACTIONS (5)
  - ASTHENIA [None]
  - DYSPNOEA [None]
  - FATIGUE [None]
  - HEADACHE [None]
  - MOBILITY DECREASED [None]
